FAERS Safety Report 22282357 (Version 1)
Quarter: 2023Q2

REPORT INFORMATION
  Report Type: Spontaneous
  Country: US (occurrence: US)
  Receive Date: 20230504
  Receipt Date: 20230504
  Transmission Date: 20230721
  Serious: Yes (Other)
  Sender: FDA-Public Use
  Company Number: US-002147023-NVSC2023US100641

PATIENT
  Age: 53 Year
  Sex: Male

DRUGS (1)
  1. METHOTREXATE [Suspect]
     Active Substance: METHOTREXATE
     Indication: Berylliosis
     Dosage: UNK
     Route: 065
     Dates: start: 2013

REACTIONS (3)
  - Berylliosis [Unknown]
  - Condition aggravated [Unknown]
  - Product use in unapproved indication [Unknown]
